FAERS Safety Report 4304133-X (Version None)
Quarter: 2004Q1

REPORT INFORMATION
  Report Type: 
  Country: None (occurrence: None)
  Receive Date: 20040225
  Receipt Date: 20040211
  Transmission Date: 20041129
  Serious: Yes (Death)
  Sender: FDA-Public Use
  Company Number: 2004S1000132

PATIENT
  Age: 88 Year
  Sex: Female

DRUGS (12)
  1. CLOZAPINE [Suspect]
     Dosage: 25 MG BID, 12.5 QD, ORAL
     Route: 048
     Dates: start: 20030717
  2. MORPHONE SULFATE [Concomitant]
  3. DOCUSATE SODIUM [Concomitant]
  4. DONEPEZIL [Concomitant]
  5. ENALAPRIL MALEATE [Concomitant]
  6. FAMOTIDINE [Concomitant]
  7. FENTANYL [Concomitant]
  8. HYDROCODONE BITARTRATE AND ACETAMINOPHEN [Concomitant]
  9. LORAZEPAM [Concomitant]
  10. PAROXETINE HCL [Concomitant]
  11. PROMETHAZINE [Concomitant]
  12. PROPRANOLOL [Concomitant]

REACTIONS (1)
  - DEMENTIA [None]
